FAERS Safety Report 14479056 (Version 2)
Quarter: 2018Q2

REPORT INFORMATION
  Report Type: Report from Study
  Country: BE (occurrence: BE)
  Receive Date: 20180202
  Receipt Date: 20180406
  Transmission Date: 20180711
  Serious: Yes (Life-Threatening, Hospitalization, Other)
  Sender: FDA-Public Use
  Company Number: BE-TAKEDA-2016BE006385

PATIENT
  Age: 75 Year
  Sex: Female
  Weight: 50 kg

DRUGS (34)
  1. LITICAN                            /00690801/ [Concomitant]
     Active Substance: ALIZAPRIDE
     Dosage: UNK
     Route: 048
     Dates: start: 20150512, end: 20161021
  2. BISOPROLOL [Concomitant]
     Active Substance: BISOPROLOL
     Indication: PALPITATIONS
     Dosage: UNK
     Route: 048
     Dates: start: 20160102, end: 20160416
  3. ROZEX (METRONIDAZOLE) [Concomitant]
     Active Substance: METRONIDAZOLE
     Indication: BODY TINEA
     Dosage: UNK
     Route: 061
     Dates: start: 20160310, end: 201605
  4. MONURIL [Concomitant]
     Active Substance: FOSFOMYCIN SODIUM
     Dosage: UNK
     Route: 048
     Dates: start: 20170128, end: 20170128
  5. CORTISONE [Concomitant]
     Active Substance: CORTISONE\HYDROCORTISONE
     Dosage: UNK
     Route: 008
     Dates: start: 20170622, end: 20170622
  6. STILNOCT [Concomitant]
     Active Substance: ZOLPIDEM TARTRATE
     Indication: INSOMNIA
     Dosage: UNK
     Route: 048
     Dates: start: 20130723, end: 20170710
  7. PANTOMED                           /00178901/ [Concomitant]
     Active Substance: DEXPANTHENOL
     Dosage: UNK
     Route: 048
     Dates: start: 20160416, end: 20160418
  8. ASAFLOW [Concomitant]
     Active Substance: ASPIRIN
     Dosage: UNK
     Route: 048
     Dates: start: 20170421, end: 20171223
  9. LITICAN                            /00690801/ [Concomitant]
     Active Substance: ALIZAPRIDE
     Dosage: UNK
     Dates: start: 20161001, end: 20161012
  10. BISOPROLOL [Concomitant]
     Active Substance: BISOPROLOL
     Dosage: UNK
     Route: 048
     Dates: start: 20161017, end: 20171225
  11. CIPROFLOXACINE                     /00697201/ [Concomitant]
     Active Substance: CIPROFLOXACIN
     Indication: CYSTITIS
     Dosage: UNK
     Route: 048
     Dates: start: 20160406, end: 20160410
  12. DAFALGAN [Concomitant]
     Active Substance: ACETAMINOPHEN
     Indication: INTERVERTEBRAL DISC PROTRUSION
     Dosage: UNK
     Route: 048
     Dates: start: 20160627, end: 20161001
  13. MEDROL [Concomitant]
     Active Substance: METHYLPREDNISOLONE
     Indication: DISEASE PROGRESSION
     Dosage: UNK
     Route: 048
     Dates: start: 20170524, end: 20180115
  14. BRIGATINIB [Suspect]
     Active Substance: BRIGATINIB
     Indication: NON-SMALL CELL LUNG CANCER
     Dosage: 90 MG, QD
     Route: 048
     Dates: start: 20150504, end: 20150510
  15. BRIGATINIB [Suspect]
     Active Substance: BRIGATINIB
     Dosage: 120 MG, QD
     Route: 048
     Dates: start: 20160824, end: 20180105
  16. LITICAN                            /00690801/ [Concomitant]
     Active Substance: ALIZAPRIDE
     Indication: NAUSEA
     Dosage: UNK
     Route: 048
     Dates: start: 20150310, end: 20150413
  17. BISOPROLOL [Concomitant]
     Active Substance: BISOPROLOL
     Dosage: UNK
     Route: 048
     Dates: start: 20160422, end: 20161001
  18. MONURIL [Concomitant]
     Active Substance: FOSFOMYCIN SODIUM
     Indication: CYSTITIS
     Dosage: UNK
     Route: 048
     Dates: start: 20160402, end: 20160402
  19. MONURIL [Concomitant]
     Active Substance: FOSFOMYCIN SODIUM
     Indication: URINARY TRACT INFECTION
     Dosage: UNK
     Route: 048
     Dates: start: 20161115, end: 20161115
  20. MOTILIUM [Concomitant]
     Active Substance: DOMPERIDONE
     Dosage: UNK
     Route: 048
     Dates: start: 20170102, end: 20170501
  21. PANTOMED                           /00178901/ [Concomitant]
     Active Substance: DEXPANTHENOL
     Indication: PROPHYLAXIS
     Dosage: UNK
     Route: 048
     Dates: start: 20140601, end: 20160416
  22. DAKTARIN                           /00310801/ [Concomitant]
     Active Substance: MICONAZOLE NITRATE
     Indication: RASH
     Dosage: UNK
     Route: 061
     Dates: start: 20160301, end: 20160405
  23. CHOLINE SALICYLATE [Concomitant]
     Active Substance: CHOLINE SALICYLATE
     Indication: GINGIVITIS
     Dosage: UNK
     Route: 048
     Dates: start: 20160718, end: 20180115
  24. DAFALGAN [Concomitant]
     Active Substance: ACETAMINOPHEN
     Dosage: UNK
     Route: 048
     Dates: start: 20170414, end: 20171223
  25. BRIGATINIB [Suspect]
     Active Substance: BRIGATINIB
     Dosage: 180 MG, QD
     Route: 048
     Dates: start: 20150511, end: 20160415
  26. ASAFLOW [Concomitant]
     Active Substance: ASPIRIN
     Indication: THROMBOSIS PROPHYLAXIS
     Dosage: UNK
     Route: 048
     Dates: start: 20140105, end: 20160416
  27. FLUCONAZOLE. [Concomitant]
     Active Substance: FLUCONAZOLE
     Indication: RASH
     Dosage: 50 MG, UNK
     Route: 048
     Dates: start: 20160301, end: 20160405
  28. TETRALYSAL                         /00001701/ [Concomitant]
     Active Substance: LYMECYCLINE
     Indication: BODY TINEA
     Dosage: UNK
     Route: 001
     Dates: start: 20160310, end: 201605
  29. CORTISONE [Concomitant]
     Active Substance: CORTISONE\HYDROCORTISONE
     Indication: INTERVERTEBRAL DISC PROTRUSION
     Dosage: UNK
     Route: 008
     Dates: start: 20170322, end: 20170322
  30. CORTISONE [Concomitant]
     Active Substance: CORTISONE\HYDROCORTISONE
     Dosage: UNK
     Route: 008
     Dates: start: 20160407, end: 20160407
  31. MOTILIUM [Concomitant]
     Active Substance: DOMPERIDONE
     Indication: NAUSEA
     Dosage: UNK
     Route: 048
     Dates: start: 20161014, end: 20170101
  32. BRIGATINIB [Suspect]
     Active Substance: BRIGATINIB
     Dosage: 120 MG, QD
     Route: 048
     Dates: start: 20160421, end: 20160822
  33. L-THYROXINE                        /00068001/ [Concomitant]
     Active Substance: LEVOTHYROXINE
     Indication: HYPOTHYROIDISM
     Dosage: UNK
     Route: 048
     Dates: start: 20130620, end: 20180106
  34. PANTOMED                           /00178901/ [Concomitant]
     Active Substance: DEXPANTHENOL
     Dosage: UNK
     Route: 048
     Dates: start: 20160418, end: 20180109

REACTIONS (3)
  - Decreased appetite [Not Recovered/Not Resolved]
  - Haemoptysis [Recovered/Resolved]
  - Hepatic function abnormal [Recovered/Resolved]

NARRATIVE: CASE EVENT DATE: 20160416
